FAERS Safety Report 12996843 (Version 2)
Quarter: 2017Q1

REPORT INFORMATION
  Report Type: Spontaneous
  Country: JP (occurrence: JP)
  Receive Date: 20161205
  Receipt Date: 20170126
  Transmission Date: 20170428
  Serious: Yes (Other)
  Sender: FDA-Public Use
  Company Number: JP-ROCHE-1862355

PATIENT
  Age: 81 Year
  Sex: Female
  Weight: 44 kg

DRUGS (7)
  1. SOVALDI [Suspect]
     Active Substance: SOFOSBUVIR
     Indication: CHRONIC HEPATITIS C
     Dosage: DOSAGE IS UNCERTAIN.
     Route: 065
     Dates: start: 20150610, end: 20150623
  2. NORVASC [Concomitant]
     Active Substance: AMLODIPINE BESYLATE
     Indication: HYPERTENSION
     Route: 048
  3. SOVALDI [Suspect]
     Active Substance: SOFOSBUVIR
     Route: 065
     Dates: start: 20150624, end: 20150722
  4. EPADEL [Concomitant]
     Active Substance: ICOSAPENT
     Indication: PROPHYLAXIS
     Route: 048
     Dates: start: 20150610, end: 20150721
  5. OLMETEC [Concomitant]
     Active Substance: OLMESARTAN MEDOXOMIL
     Indication: HYPERTENSION
     Route: 048
  6. GASTER [Concomitant]
     Active Substance: FAMOTIDINE
     Indication: GASTROOESOPHAGEAL REFLUX DISEASE
     Route: 048
     Dates: end: 20150707
  7. COPEGUS [Suspect]
     Active Substance: RIBAVIRIN
     Indication: CHRONIC HEPATITIS C
     Dosage: DOSAGE IS UNCERTAIN.
     Route: 048
     Dates: start: 20150610, end: 20150623

REACTIONS (3)
  - Haemoglobin decreased [Recovering/Resolving]
  - Hyperkalaemia [Unknown]
  - Renal impairment [Recovering/Resolving]

NARRATIVE: CASE EVENT DATE: 20150624
